FAERS Safety Report 5043010-6 (Version None)
Quarter: 2006Q2

REPORT INFORMATION
  Report Type: 
  Country: None (occurrence: None)
  Receive Date: 20060627
  Receipt Date: 20060619
  Transmission Date: 20061013
  Serious: Yes (Hospitalization)
  Sender: FDA-Public Use
  Company Number: GXKR2006JP03495

PATIENT
  Age: 61 Year
  Sex: Male
  Weight: 50 kg

DRUGS (4)
  1. ISONAZID (NGX) (ISONAZID) [Suspect]
     Indication: MYCOBACTERIUM KANSASII INFECTION
     Dosage: 400 MG
     Dates: start: 20040301, end: 20040101
  2. CLARITHROMYCIN [Concomitant]
  3. ETHAMBUTOL HCL [Concomitant]
  4. RIFAMPICIN [Concomitant]

REACTIONS (4)
  - HEPATIC ENZYME INCREASED [None]
  - LUNG CONSOLIDATION [None]
  - PNEUMONITIS [None]
  - PRURITUS [None]
